FAERS Safety Report 16009419 (Version 2)
Quarter: 2019Q2

REPORT INFORMATION
  Report Type: Spontaneous
  Country: CR (occurrence: CR)
  Receive Date: 20190226
  Receipt Date: 20190421
  Transmission Date: 20190711
  Serious: Yes (Other)
  Sender: FDA-Public Use
  Company Number: CR-AMGEN-CRISP2019030636

PATIENT
  Age: 80 Year
  Sex: Male

DRUGS (1)
  1. ENBREL [Suspect]
     Active Substance: ETANERCEPT
     Indication: PRODUCT USED FOR UNKNOWN INDICATION
     Dosage: UNK
     Route: 065

REACTIONS (6)
  - Speech disorder [Unknown]
  - Unresponsive to stimuli [Unknown]
  - Eating disorder [Unknown]
  - Pyrexia [Unknown]
  - Dysstasia [Unknown]
  - Joint swelling [Unknown]

NARRATIVE: CASE EVENT DATE: 20190217
